FAERS Safety Report 12329674 (Version 2)
Quarter: 2016Q4

REPORT INFORMATION
  Report Type: Spontaneous
  Country: FR (occurrence: FR)
  Receive Date: 20160503
  Receipt Date: 20161025
  Transmission Date: 20170207
  Serious: Yes (Other)
  Sender: FDA-Public Use
  Company Number: FR-ABBVIE-16P-056-1620153-00

PATIENT

DRUGS (1)
  1. DEPAKINE [Suspect]
     Active Substance: VALPROATE SODIUM
     Indication: MATERNAL EXPOSURE TIMING UNSPECIFIED
     Route: 064

REACTIONS (2)
  - Unevaluable event [Unknown]
  - Foetal exposure during pregnancy [Unknown]
